FAERS Safety Report 16578147 (Version 2)
Quarter: 2019Q3

REPORT INFORMATION
  Report Type: Spontaneous
  Country: US (occurrence: US)
  Receive Date: 20190716
  Receipt Date: 20190917
  Transmission Date: 20191004
  Serious: No
  Sender: FDA-Public Use
  Company Number: US-PFIZER INC-2019299209

PATIENT
  Age: 84 Year
  Sex: Female
  Weight: 48 kg

DRUGS (3)
  1. IBRANCE [Suspect]
     Active Substance: PALBOCICLIB
     Indication: BREAST CANCER FEMALE
     Dosage: 125 MG, UNK
  2. FASLODEX [Concomitant]
     Active Substance: FULVESTRANT
     Dosage: 500 MG, MONTHLY
     Dates: start: 201904
  3. IBRANCE [Suspect]
     Active Substance: PALBOCICLIB
     Dosage: 250 MG, 1X/DAY
     Dates: start: 201904, end: 2019

REACTIONS (1)
  - Full blood count decreased [Not Recovered/Not Resolved]

NARRATIVE: CASE EVENT DATE: 201904
